FAERS Safety Report 4362052-7 (Version None)
Quarter: 2004Q2

REPORT INFORMATION
  Report Type: 
  Country: None (occurrence: None)
  Receive Date: 20040521
  Receipt Date: 20040225
  Transmission Date: 20050107
  Serious: No
  Sender: FDA-Public Use
  Company Number: US-GLAXOSMITHKLINE-A0499868A

PATIENT
  Age: 11 Year
  Sex: Male

DRUGS (6)
  1. WELLBUTRIN XL [Suspect]
     Route: 048
     Dates: start: 20040225
  2. NORTRIPTYLINE HCL [Concomitant]
  3. CONCERTA [Concomitant]
  4. DEPAKOTE [Concomitant]
  5. RITALIN [Concomitant]
  6. CLONIDINE HCL [Concomitant]

REACTIONS (3)
  - ACCIDENTAL EXPOSURE [None]
  - AGITATION [None]
  - PALPITATIONS [None]
